FAERS Safety Report 6888717-0 (Version None)
Quarter: 2010Q3

REPORT INFORMATION
  Report Type: 
  Country: None (occurrence: None)
  Receive Date: 20100730
  Receipt Date: 20100728
  Transmission Date: 20110219
  Serious: Yes (Hospitalization, Other)
  Sender: FDA-Public Use
  Company Number: AU-AMGEN-QUU424178

PATIENT

DRUGS (7)
  1. NEULASTA [Suspect]
     Indication: CHEMOTHERAPY
     Route: 065
     Dates: start: 20100201
  2. PLATINOL [Concomitant]
     Dates: start: 20091106
  3. ADRIAMYCIN PFS [Concomitant]
     Dates: start: 20091106
  4. CYCLOPHOSPHAMIDE [Concomitant]
     Dates: start: 20091106
  5. FLUOROURACIL [Concomitant]
     Dates: start: 20091106
  6. EPIRUBICIN [Concomitant]
     Dates: start: 20091106
  7. TAXOTERE [Concomitant]
     Dates: start: 20100115

REACTIONS (2)
  - DRUG INEFFECTIVE [None]
  - FEBRILE NEUTROPENIA [None]
